FAERS Safety Report 7519903-4 (Version None)
Quarter: 2011Q2

REPORT INFORMATION
  Report Type: 
  Country: None (occurrence: None)
  Receive Date: 20110602
  Receipt Date: 20110522
  Transmission Date: 20111010
  Serious: Yes (Death)
  Sender: FDA-Public Use
  Company Number: PT-ACTELION-A-CH2011-48637

PATIENT
  Sex: Male
  Weight: 11 kg

DRUGS (1)
  1. ZAVESCA [Suspect]
     Indication: NIEMANN-PICK DISEASE
     Dosage: 100 MG, OD
     Route: 048
     Dates: start: 20090602, end: 20100601

REACTIONS (4)
  - NIEMANN-PICK DISEASE [None]
  - CARDIO-RESPIRATORY ARREST [None]
  - NEUROLOGICAL DECOMPENSATION [None]
  - DISEASE PROGRESSION [None]
